FAERS Safety Report 4704818-7 (Version None)
Quarter: 2005Q3

REPORT INFORMATION
  Report Type: 
  Country: None (occurrence: None)
  Receive Date: 20050701
  Receipt Date: 20040927
  Transmission Date: 20060218
  Serious: No
  Sender: FDA-Public Use
  Company Number: US-GLAXOSMITHKLINE-A0527391A

PATIENT
  Age: 74 Year
  Sex: Female

DRUGS (5)
  1. PARNATE [Suspect]
     Indication: DEPRESSION
     Dosage: 10MG ALTERNATE DAYS
     Route: 048
     Dates: start: 20040801
  2. EVISTA [Concomitant]
  3. DYAZIDE [Concomitant]
  4. LISINOPRIL [Concomitant]
  5. TEMAZEPAM [Concomitant]

REACTIONS (2)
  - DISORIENTATION [None]
  - FEELING JITTERY [None]
